FAERS Safety Report 7875230-7 (Version None)
Quarter: 2011Q4

REPORT INFORMATION
  Report Type: 
  Country: None (occurrence: None)
  Receive Date: 20111031
  Receipt Date: 20111018
  Transmission Date: 20120403
  Serious: Yes (Hospitalization, Other)
  Sender: FDA-Public Use
  Company Number: US-BAYER-2011-025298

PATIENT
  Age: 30 Year
  Sex: Female
  Weight: 61 kg

DRUGS (13)
  1. PROPOXYPHENE HYDROCHLORIDE [Concomitant]
     Dosage: UNK UNK, PRN
     Route: 048
  2. YASMIN [Suspect]
     Dosage: UNK
     Route: 048
     Dates: start: 20060530, end: 20090201
  3. AZITHROMYCIN [Concomitant]
     Dosage: 250 MG, UNK
     Route: 048
  4. OXYCODONE HCL AND ACETAMINOPHEN [Concomitant]
     Dosage: UNK UNK, PRN
     Route: 048
  5. IBUPROFEN [Concomitant]
     Dosage: 800 MG, PRN
     Route: 048
  6. ALPRAZOLAM [Concomitant]
     Dosage: 0.5 MG, PRN
     Route: 048
  7. CIPROFLOXACIN [Concomitant]
     Dosage: 500 MG, BID
     Route: 048
  8. SUBOXONE [Concomitant]
     Route: 060
  9. DICYCLOMINE [Concomitant]
     Dosage: 20 MG, PRN
     Route: 048
  10. YAZ [Suspect]
     Dosage: UNK
     Route: 048
     Dates: start: 20060530, end: 20090201
  11. FLUTICASONE PROPIONATE [Concomitant]
     Dosage: 2 U, UNK
     Route: 045
  12. METRONIDAZOLE [Concomitant]
     Dosage: 500 MG, TID
     Route: 048
  13. LEXAPRO [Concomitant]
     Dosage: 10 MG, UNK
     Route: 048

REACTIONS (10)
  - CHOLELITHIASIS [None]
  - UTERINE LEIOMYOMA [None]
  - OVARIAN CYST [None]
  - ANXIETY [None]
  - PAIN [None]
  - ENDOMETRIOSIS [None]
  - ANHEDONIA [None]
  - INJURY [None]
  - GALLBLADDER DISORDER [None]
  - BIPOLAR DISORDER [None]
